FAERS Safety Report 14224840 (Version 2)
Quarter: 2017Q4

REPORT INFORMATION
  Report Type: Spontaneous
  Country: US (occurrence: US)
  Receive Date: 20171127
  Receipt Date: 20171127
  Transmission Date: 20180321
  Serious: No
  Sender: FDA-Public Use
  Company Number: US-AUROBINDO-AUR-APL-2017-30487

PATIENT
  Sex: Female

DRUGS (1)
  1. GABAPENTIN TABLETS USP 800MG [Suspect]
     Active Substance: GABAPENTIN
     Indication: MYALGIA
     Dosage: 800 MG, 3 TIMES A DAY
     Route: 048
     Dates: start: 201608, end: 201703

REACTIONS (6)
  - Coordination abnormal [Not Recovered/Not Resolved]
  - Asthenia [Not Recovered/Not Resolved]
  - Vision blurred [Not Recovered/Not Resolved]
  - Muscle spasms [Not Recovered/Not Resolved]
  - Wrong technique in product usage process [Not Recovered/Not Resolved]
  - Balance disorder [Not Recovered/Not Resolved]
